FAERS Safety Report 16573726 (Version 3)
Quarter: 2019Q3

REPORT INFORMATION
  Report Type: Report from Study
  Country: US (occurrence: US)
  Receive Date: 20190715
  Receipt Date: 20190925
  Transmission Date: 20191004
  Serious: Yes (Life-Threatening, Hospitalization)
  Sender: FDA-Public Use
  Company Number: US-JNJFOC-20190703263

PATIENT
  Age: 58 Year
  Sex: Male
  Weight: 47.3 kg

DRUGS (17)
  1. AMLODIPINE [Concomitant]
     Active Substance: AMLODIPINE BESYLATE
     Indication: HYPERTENSION
     Route: 048
     Dates: start: 20181028, end: 20190627
  2. LEVOTHYROXINE. [Concomitant]
     Active Substance: LEVOTHYROXINE
     Indication: HYPOTHYROIDISM
     Dosage: 88 MCG, QD
     Route: 048
     Dates: start: 20181028
  3. URSODIOL. [Concomitant]
     Active Substance: URSODIOL
     Indication: PROPHYLAXIS
     Dosage: 300 MG, BID
     Route: 048
     Dates: start: 20181028
  4. ONDANSETRON [Concomitant]
     Active Substance: ONDANSETRON
     Indication: PROPHYLAXIS
     Dosage: 8 MG, TID, PRN
     Route: 048
     Dates: start: 20181030, end: 20190625
  5. POSACONAZOLE [Concomitant]
     Active Substance: POSACONAZOLE
     Indication: LUNG INFECTION
     Route: 048
     Dates: start: 20190619, end: 20190619
  6. IBRUTINIB [Suspect]
     Active Substance: IBRUTINIB
     Indication: CHRONIC GRAFT VERSUS HOST DISEASE
     Route: 065
     Dates: start: 20181015, end: 20190626
  7. PREDNISONE. [Suspect]
     Active Substance: PREDNISONE
     Indication: CHRONIC GRAFT VERSUS HOST DISEASE
     Dosage: 0 MG, UNK
     Route: 048
     Dates: start: 20181005, end: 20190109
  8. HEPATITIS B VACCINE [Concomitant]
     Active Substance: HEPATITIS B VIRUS VACCINE
     Indication: PROPHYLAXIS
     Dosage: 20 MCG, SINGLE
     Route: 030
     Dates: start: 20190610, end: 20190610
  9. TRAMADOL. [Concomitant]
     Active Substance: TRAMADOL
     Indication: NECK PAIN
     Route: 048
     Dates: start: 20181030, end: 20190626
  10. ACETAMINOPHEN. [Concomitant]
     Active Substance: ACETAMINOPHEN
     Indication: INFLUENZA LIKE ILLNESS
     Dosage: 650 MG, BID, PRN
     Route: 048
     Dates: start: 20190615, end: 20190625
  11. POSACONAZOLE [Concomitant]
     Active Substance: POSACONAZOLE
     Route: 048
     Dates: start: 20190620, end: 20190626
  12. LEVOFLOXACIN. [Concomitant]
     Active Substance: LEVOFLOXACIN
     Indication: LUNG INFECTION
     Route: 048
     Dates: start: 20190617, end: 20190626
  13. HAEMOPHILUS B CONJUGATE VACCINE (TETANUS) [Concomitant]
     Indication: PROPHYLAXIS
     Route: 030
     Dates: start: 20190610, end: 20190610
  14. POLIOVIRUS VACCINE, INACTIVATED [Concomitant]
     Indication: PROPHYLAXIS
     Route: 030
     Dates: start: 20190610, end: 20190610
  15. ACYCLOVIR                          /00587301/ [Concomitant]
     Active Substance: ACYCLOVIR
     Indication: PROPHYLAXIS
     Route: 048
     Dates: start: 20181027, end: 20190703
  16. LOPERAMIDE [Concomitant]
     Active Substance: LOPERAMIDE
     Indication: DIARRHOEA
     Dosage: 2 MG, Q 4 HOURS, PRN
     Route: 048
     Dates: start: 20190205, end: 20190625
  17. PNEUMOCOCCAL 13 VALENT VACCINE [Concomitant]
     Active Substance: PNEUMOCOCCAL 13-VALENT CONJUGATE VACCINE
     Indication: PROPHYLAXIS
     Route: 030
     Dates: start: 20190610, end: 20190610

REACTIONS (2)
  - Respiratory failure [Recovered/Resolved]
  - Lung infection [Recovered/Resolved]

NARRATIVE: CASE EVENT DATE: 20190626
